FAERS Safety Report 5927638-4 (Version None)
Quarter: 2008Q4

REPORT INFORMATION
  Report Type: 
  Country: None (occurrence: None)
  Receive Date: 20081021
  Receipt Date: 20081021
  Transmission Date: 20090506
  Serious: Yes (Hospitalization)
  Sender: FDA-Public Use
  Company Number: None

PATIENT
  Sex: Female
  Weight: 70.7611 kg

DRUGS (2)
  1. YAZ [Suspect]
     Indication: ORAL CONTRACEPTION
     Dosage: ONE DAILY PO
     Route: 048
     Dates: start: 20080701, end: 20081014
  2. GARDASIL VACCINE [Concomitant]

REACTIONS (1)
  - PULMONARY EMBOLISM [None]
